FAERS Safety Report 25919941 (Version 1)
Quarter: 2025Q4

REPORT INFORMATION
  Report Type: Spontaneous
  Country: GB (occurrence: GB)
  Receive Date: 20251014
  Receipt Date: 20251014
  Transmission Date: 20260118
  Serious: Yes (Hospitalization, Other)
  Sender: MYLAN
  Company Number: None

PATIENT
  Sex: Female

DRUGS (20)
  1. SILDENAFIL [Suspect]
     Active Substance: SILDENAFIL
     Indication: Pulmonary hypertension
     Dosage: 25 MILLIGRAM, TID (25MG - THREE TIMES DAILY)
  2. SILDENAFIL [Suspect]
     Active Substance: SILDENAFIL
     Dosage: 25 MILLIGRAM, TID (25MG - THREE TIMES DAILY)
     Route: 065
  3. SILDENAFIL [Suspect]
     Active Substance: SILDENAFIL
     Dosage: 25 MILLIGRAM, TID (25MG - THREE TIMES DAILY)
     Route: 065
  4. SILDENAFIL [Suspect]
     Active Substance: SILDENAFIL
     Dosage: 25 MILLIGRAM, TID (25MG - THREE TIMES DAILY)
  5. TADALAFIL [Suspect]
     Active Substance: TADALAFIL
     Indication: Pulmonary hypertension
     Dosage: 20 MILLIGRAM, BID (20MG - TWO DAILY)
  6. TADALAFIL [Suspect]
     Active Substance: TADALAFIL
     Dosage: 20 MILLIGRAM, BID (20MG - TWO DAILY)
     Route: 065
  7. TADALAFIL [Suspect]
     Active Substance: TADALAFIL
     Dosage: 20 MILLIGRAM, BID (20MG - TWO DAILY)
     Route: 065
  8. TADALAFIL [Suspect]
     Active Substance: TADALAFIL
     Dosage: 20 MILLIGRAM, BID (20MG - TWO DAILY)
  9. AMBRISENTAN [Suspect]
     Active Substance: AMBRISENTAN
     Indication: Pulmonary hypertension
     Dosage: 15 MILLIGRAM, QD
     Dates: start: 20250601
  10. AMBRISENTAN [Suspect]
     Active Substance: AMBRISENTAN
     Dosage: 15 MILLIGRAM, QD
     Route: 065
     Dates: start: 20250601
  11. AMBRISENTAN [Suspect]
     Active Substance: AMBRISENTAN
     Dosage: 15 MILLIGRAM, QD
     Route: 065
     Dates: start: 20250601
  12. AMBRISENTAN [Suspect]
     Active Substance: AMBRISENTAN
     Dosage: 15 MILLIGRAM, QD
     Dates: start: 20250601
  13. FOLIC ACID [Concomitant]
     Active Substance: FOLIC ACID
     Dosage: UNK
  14. FOLIC ACID [Concomitant]
     Active Substance: FOLIC ACID
     Dosage: UNK
     Route: 065
  15. FOLIC ACID [Concomitant]
     Active Substance: FOLIC ACID
     Dosage: UNK
     Route: 065
  16. FOLIC ACID [Concomitant]
     Active Substance: FOLIC ACID
     Dosage: UNK
  17. MORPHINE [Concomitant]
     Active Substance: MORPHINE
     Dosage: UNK
  18. MORPHINE [Concomitant]
     Active Substance: MORPHINE
     Dosage: UNK
     Route: 065
  19. MORPHINE [Concomitant]
     Active Substance: MORPHINE
     Dosage: UNK
     Route: 065
  20. MORPHINE [Concomitant]
     Active Substance: MORPHINE
     Dosage: UNK

REACTIONS (5)
  - Swelling [Unknown]
  - Dyspnoea [Unknown]
  - Weight decreased [Unknown]
  - Malaise [Unknown]
  - Cardiac failure [Unknown]

NARRATIVE: CASE EVENT DATE: 20251007
